FAERS Safety Report 10774654 (Version 1)
Quarter: 2015Q1

REPORT INFORMATION
  Report Type: Other
  Country: US (occurrence: US)
  Receive Date: 20150209
  Receipt Date: 20150209
  Transmission Date: 20150721
  Serious: No
  Sender: FDA-Public Use
  Company Number: US-ACORDA-ACO_108428_2015

PATIENT
  Age: 45 Year
  Sex: Female

DRUGS (1)
  1. AMPYRA [Suspect]
     Active Substance: DALFAMPRIDINE
     Indication: HEREDITARY SPASTIC PARAPLEGIA
     Dosage: 10 MG, Q 12 HRS
     Route: 048
     Dates: start: 20141210, end: 20150106

REACTIONS (2)
  - Product use issue [None]
  - Musculoskeletal stiffness [Unknown]
